FAERS Safety Report 24534535 (Version 2)
Quarter: 2024Q4

REPORT INFORMATION
  Report Type: Spontaneous
  Country: US (occurrence: US)
  Receive Date: 20241022
  Receipt Date: 20241107
  Transmission Date: 20250115
  Serious: No
  Sender: NOVARTIS
  Company Number: US-002147023-NVSC2024US205874

PATIENT
  Age: 63 Year
  Sex: Male

DRUGS (1)
  1. LEQVIO [Suspect]
     Active Substance: INCLISIRAN SODIUM
     Indication: Low density lipoprotein
     Dosage: 284 MG/KG, OTHER (RECEIVED INITIAL AND THREE-MONTH INJECTIONS)
     Route: 058
     Dates: start: 20240501, end: 20240801

REACTIONS (3)
  - Arthralgia [Unknown]
  - Asthenia [Unknown]
  - Muscle fatigue [Unknown]

NARRATIVE: CASE EVENT DATE: 20240917
